FAERS Safety Report 9464449 (Version 1)
Quarter: 2013Q3

REPORT INFORMATION
  Report Type: Spontaneous
  Country: FR (occurrence: FR)
  Receive Date: 20130819
  Receipt Date: 20130819
  Transmission Date: 20140515
  Serious: Yes (Hospitalization)
  Sender: FDA-Public Use
  Company Number: FR-ABBOTT-13P-056-1132441-00

PATIENT
  Age: 24 Year
  Sex: Female

DRUGS (5)
  1. KALETRA [Suspect]
     Indication: EXPOSURE TO COMMUNICABLE DISEASE
     Dates: start: 20130426
  2. NORVIR [Suspect]
     Indication: EXPOSURE TO COMMUNICABLE DISEASE
     Route: 048
     Dates: start: 20130507, end: 20130509
  3. NORVIR [Suspect]
     Dates: start: 20130511
  4. REYATAZ [Suspect]
     Indication: EXPOSURE TO COMMUNICABLE DISEASE
     Route: 048
     Dates: start: 20130507, end: 20130509
  5. TRUVADA [Suspect]
     Indication: EXPOSURE TO COMMUNICABLE DISEASE
     Dates: start: 20130426

REACTIONS (5)
  - Urticaria [Recovered/Resolved]
  - Face oedema [Recovered/Resolved]
  - Eyelid oedema [Recovered/Resolved]
  - Nausea [Unknown]
  - Diarrhoea [Unknown]
